FAERS Safety Report 5559061-9 (Version None)
Quarter: 2007Q4

REPORT INFORMATION
  Report Type: 
  Country: None (occurrence: None)
  Receive Date: 20071214
  Receipt Date: 20070913
  Transmission Date: 20080405
  Serious: No
  Sender: FDA-Public Use
  Company Number: US-ABBOTT-07P-163-0417338-00

PATIENT
  Sex: Female
  Weight: 45.4 kg

DRUGS (3)
  1. HUMIRA [Suspect]
     Indication: CROHN'S DISEASE
     Route: 058
     Dates: start: 20070913
  2. FORTALE INJECTIONS [Concomitant]
     Indication: OSTEOARTHRITIS
  3. ENDOCORT [Concomitant]
     Indication: DRUG USE FOR UNKNOWN INDICATION

REACTIONS (3)
  - INJECTION SITE BRUISING [None]
  - INJECTION SITE PAIN [None]
  - PROCEDURAL COMPLICATION [None]
